FAERS Safety Report 5371567-4 (Version None)
Quarter: 2007Q2

REPORT INFORMATION
  Report Type: 
  Country: None (occurrence: None)
  Receive Date: 20070625
  Receipt Date: 20070614
  Transmission Date: 20071010
  Serious: Yes (Hospitalization)
  Sender: FDA-Public Use
  Company Number: 2006BI018075

PATIENT
  Age: 32 Year
  Sex: Male

DRUGS (3)
  1. AVONEX [Suspect]
     Indication: MULTIPLE SCLEROSIS
     Dosage: 30 UG;QW;IM
     Route: 030
     Dates: start: 20060111, end: 20060918
  2. KEFLEX [Concomitant]
  3. VICODIN [Concomitant]

REACTIONS (6)
  - ABDOMINAL ABSCESS [None]
  - CELLULITIS [None]
  - ECONOMIC PROBLEM [None]
  - HERNIA [None]
  - IMPAIRED HEALING [None]
  - OPEN WOUND [None]
